FAERS Safety Report 9553228 (Version 1)
Quarter: 2013Q3

REPORT INFORMATION
  Report Type: Spontaneous
  Country: US (occurrence: None)
  Receive Date: 20130724
  Receipt Date: 20130724
  Transmission Date: 20140515
  Serious: Yes (Other)
  Sender: FDA-Public Use
  Company Number: PHEH2012US016021

PATIENT
  Age: 65 Year
  Sex: Male

DRUGS (1)
  1. GLEEVEC (IMATINIB)TABLET [Suspect]
     Indication: CHRONIC MYELOID LEUKAEMIA
     Route: 048
     Dates: start: 20110518

REACTIONS (5)
  - Blast crisis in myelogenous leukaemia [None]
  - Pancytopenia [None]
  - Hot flush [None]
  - Pyrexia [None]
  - Nasal dryness [None]
